FAERS Safety Report 18672158 (Version 1)
Quarter: 2020Q4

REPORT INFORMATION
  Report Type: Report from Study
  Country: JP (occurrence: JP)
  Receive Date: 20201229
  Receipt Date: 20201229
  Transmission Date: 20210114
  Serious: Yes (Death)
  Sender: FDA-Public Use
  Company Number: JP-UCBSA-2019052472

PATIENT
  Age: 87 Year
  Sex: Male
  Weight: 57.7 kg

DRUGS (16)
  1. TAZOPIPE [Concomitant]
     Active Substance: PIPERACILLIN SODIUM\TAZOBACTAM SODIUM
     Indication: PRODUCT USED FOR UNKNOWN INDICATION
     Dosage: UNK
     Dates: start: 20191009, end: 20191017
  2. DOPACOL [Concomitant]
     Active Substance: CARBIDOPA\LEVODOPA
     Indication: PRODUCT USED FOR UNKNOWN INDICATION
     Dosage: 300 MG DAILY
     Dates: end: 20191118
  3. ASPARA POTASSIUM [Concomitant]
     Active Substance: POTASSIUM ASPARTATE
     Indication: PRODUCT USED FOR UNKNOWN INDICATION
     Dosage: 1200 MG DAILY
     Route: 048
     Dates: end: 20191031
  4. AMIKACIN SULFATE. [Concomitant]
     Active Substance: AMIKACIN SULFATE
     Indication: PRODUCT USED FOR UNKNOWN INDICATION
     Dosage: 200 MG DAILY
     Route: 042
     Dates: start: 20191018, end: 20191019
  5. EXELON [Concomitant]
     Active Substance: RIVASTIGMINE TARTRATE
     Indication: PRODUCT USED FOR UNKNOWN INDICATION
     Dosage: 18 MG DAILY
     Route: 062
     Dates: end: 20191119
  6. ADONA [CARBAZOCHROME SODIUM SULFONATE] [Concomitant]
     Active Substance: CARBAZOCHROME SODIUM SULFONATE
     Indication: SUBDURAL HAEMATOMA
     Dosage: 90 MG DAILY
     Route: 048
     Dates: end: 20191118
  7. SULBACILLIN [Concomitant]
     Active Substance: AMPICILLIN SODIUM\SULBACTAM SODIUM
     Indication: PRODUCT USED FOR UNKNOWN INDICATION
     Dosage: 6 GRAM DAILY
     Route: 042
     Dates: start: 20191030, end: 20191102
  8. LACOSAMIDE. [Suspect]
     Active Substance: LACOSAMIDE
     Indication: PARTIAL SEIZURES WITH SECONDARY GENERALISATION
     Dosage: 50 MILLIGRAM, 2X/DAY (BID)
     Route: 048
     Dates: start: 20191017, end: 20191024
  9. MAXIPIME [Concomitant]
     Active Substance: CEFEPIME HYDROCHLORIDE
     Indication: PRODUCT USED FOR UNKNOWN INDICATION
     Dosage: 2 GRAM DAILY
     Route: 042
     Dates: start: 20191103, end: 20191111
  10. TRANSAMIN [Concomitant]
     Active Substance: TRANEXAMIC ACID
     Indication: SUBDURAL HAEMATOMA
     Dosage: 750 MG DAILY
     Route: 048
     Dates: end: 20191118
  11. MOSAPRIDE CITRATE [Concomitant]
     Active Substance: MOSAPRIDE CITRATE
     Indication: PRODUCT USED FOR UNKNOWN INDICATION
     Dosage: 15 MG DAILY
     Route: 048
     Dates: end: 20191118
  12. E KEPPRA [Concomitant]
     Active Substance: LEVETIRACETAM
     Indication: EPILEPSY
     Dosage: UNK
     Dates: start: 20191008, end: 20191017
  13. MAGMITT [Concomitant]
     Active Substance: MAGNESIUM OXIDE
     Indication: PRODUCT USED FOR UNKNOWN INDICATION
     Dosage: 990 MG DAILY
     Route: 048
     Dates: end: 20191118
  14. SPIRONOLACTONE. [Concomitant]
     Active Substance: SPIRONOLACTONE
     Indication: PRODUCT USED FOR UNKNOWN INDICATION
     Dosage: 25 MG DAILY
     Route: 048
     Dates: end: 20191118
  15. LACOSAMIDE. [Suspect]
     Active Substance: LACOSAMIDE
     Dosage: 50 MILLIGRAM, 4X/DAY (QID)
     Route: 048
     Dates: start: 20191025, end: 20191118
  16. MEROPENEM. [Concomitant]
     Active Substance: MEROPENEM
     Indication: PRODUCT USED FOR UNKNOWN INDICATION
     Dosage: 1 GRAM DAILY
     Route: 042
     Dates: start: 20191020, end: 20191024

REACTIONS (7)
  - Off label use [Unknown]
  - White blood cell count increased [Fatal]
  - C-reactive protein increased [Fatal]
  - Hepatic function abnormal [Recovering/Resolving]
  - Septic shock [Fatal]
  - Neutrophil count increased [Fatal]
  - Lymphocyte count increased [Fatal]

NARRATIVE: CASE EVENT DATE: 2019
